FAERS Safety Report 17546121 (Version 2)
Quarter: 2020Q1

REPORT INFORMATION
  Report Type: Spontaneous
  Country: US (occurrence: US)
  Receive Date: 20200316
  Receipt Date: 20200331
  Transmission Date: 20200409
  Serious: Yes (Hospitalization)
  Sender: FDA-Public Use
  Company Number: US-AMNEAL PHARMACEUTICALS-2020-AMRX-00740

PATIENT
  Sex: Male
  Weight: 7.8 kg

DRUGS (1)
  1. VIGABATRIN. [Suspect]
     Active Substance: VIGABATRIN
     Indication: SEIZURE
     Dosage: 250MG IN THE MORNING AND 300MG IN THE EVENING
     Route: 048

REACTIONS (1)
  - Gastroenteritis sapovirus [Recovered/Resolved]
